FAERS Safety Report 8418104 (Version 3)
Quarter: 2014Q4

REPORT INFORMATION
  Report Type: Report from Study
  Country: US (occurrence: US)
  Receive Date: 20120221
  Receipt Date: 20141023
  Transmission Date: 20150529
  Serious: Yes (Death, Hospitalization)
  Sender: FDA-Public Use
  Company Number: US-JNJFOC-20120205271

PATIENT
  Age: 25 Year
  Sex: Female
  Weight: 84.4 kg

DRUGS (4)
  1. ALBUTEROL. [Concomitant]
     Active Substance: ALBUTEROL
     Indication: ASTHMA
  2. ADVAIR HFA [Concomitant]
     Active Substance: FLUTICASONE PROPIONATE\SALMETEROL XINAFOATE
     Indication: ASTHMA
  3. TYLENOL PM [Suspect]
     Active Substance: ACETAMINOPHEN\DIPHENHYDRAMINE
     Indication: PRODUCT USED FOR UNKNOWN INDICATION
     Dosage: 25
     Route: 048
     Dates: start: 20120202, end: 20120202
  4. TYLENOL PM [Suspect]
     Active Substance: ACETAMINOPHEN\DIPHENHYDRAMINE
     Indication: PRODUCT USED FOR UNKNOWN INDICATION
     Dosage: 100
     Route: 048
     Dates: start: 20120203, end: 20120203

REACTIONS (5)
  - Acute hepatic failure [Fatal]
  - Hepatic encephalopathy [Fatal]
  - Intentional overdose [Fatal]
  - Renal failure [Fatal]
  - Completed suicide [Fatal]

NARRATIVE: CASE EVENT DATE: 201202
